FAERS Safety Report 15469370 (Version 3)
Quarter: 2018Q4

REPORT INFORMATION
  Report Type: Spontaneous
  Country: US (occurrence: US)
  Receive Date: 20181005
  Receipt Date: 20181016
  Transmission Date: 20190205
  Serious: No
  Sender: FDA-Public Use
  Company Number: US-AMGEN-USASP2018125503

PATIENT
  Sex: Female

DRUGS (14)
  1. ZEMPLAR [Suspect]
     Active Substance: PARICALCITOL
     Dosage: 7 MUG, 3 TIMES/WK
     Route: 065
     Dates: start: 20170623, end: 20171021
  2. PARSABIV [Suspect]
     Active Substance: ETELCALCETIDE HYDROCHLORIDE
     Dosage: 12.5 MG, 3 TIMES/WK
     Route: 065
     Dates: start: 20180422
  3. ZEMPLAR [Suspect]
     Active Substance: PARICALCITOL
     Indication: PRODUCT USED FOR UNKNOWN INDICATION
     Dosage: UNK UNK, 3 TIMES/WK
     Route: 065
     Dates: start: 20080414
  4. SENSIPAR [Suspect]
     Active Substance: CINACALCET HYDROCHLORIDE
     Indication: PRODUCT USED FOR UNKNOWN INDICATION
     Dosage: UNK
     Route: 065
  5. SENSIPAR [Suspect]
     Active Substance: CINACALCET HYDROCHLORIDE
     Dosage: 90 MG, QD
     Route: 065
     Dates: start: 20150710
  6. SENSIPAR [Suspect]
     Active Substance: CINACALCET HYDROCHLORIDE
     Dosage: 90 MG, QD
     Route: 065
     Dates: start: 20171004, end: 20171122
  7. PARSABIV [Suspect]
     Active Substance: ETELCALCETIDE HYDROCHLORIDE
     Dosage: 7.5 MG, 3 TIMES/WK
     Route: 065
     Dates: start: 20180214
  8. SEVELAMER [Concomitant]
     Active Substance: SEVELAMER
     Dosage: 2400 MG, TID
     Dates: start: 20180428
  9. PARSABIV [Suspect]
     Active Substance: ETELCALCETIDE HYDROCHLORIDE
     Indication: PRODUCT USED FOR UNKNOWN INDICATION
     Dosage: 5 MG, 3 TIMES/WK
     Route: 065
     Dates: start: 20171124
  10. SEVELAMER [Concomitant]
     Active Substance: SEVELAMER
     Dosage: 1600 MG, TID
     Dates: start: 20180220
  11. PARSABIV [Suspect]
     Active Substance: ETELCALCETIDE HYDROCHLORIDE
     Dosage: 10 MG, 3 TIMES/WK
     Route: 065
     Dates: start: 20180314
  12. PARSABIV [Suspect]
     Active Substance: ETELCALCETIDE HYDROCHLORIDE
     Dosage: 15 MG, 3 TIMES/WK
     Route: 065
     Dates: start: 20180612
  13. ZEMPLAR [Suspect]
     Active Substance: PARICALCITOL
     Dosage: 14 MUG, 3 TIMES/WK
     Route: 065
     Dates: start: 20170604
  14. SEVELAMER [Concomitant]
     Active Substance: SEVELAMER
     Dosage: 2400 MG, TID
     Dates: start: 20171012

REACTIONS (2)
  - Drug ineffective [Unknown]
  - Labelled drug-drug interaction medication error [Unknown]
